FAERS Safety Report 5321291-9 (Version None)
Quarter: 2007Q2

REPORT INFORMATION
  Report Type: 
  Country: None (occurrence: None)
  Receive Date: 20070507
  Receipt Date: 20070507
  Transmission Date: 20071010
  Serious: Yes (Other)
  Sender: FDA-Public Use
  Company Number: None

PATIENT
  Age: 8 Year
  Sex: Male
  Weight: 31 kg

DRUGS (1)
  1. LAMOTRIGINE [Suspect]
     Indication: EPILEPSY
     Dosage: 50 MG BID  PO
     Route: 048
     Dates: start: 20070112, end: 20070206

REACTIONS (3)
  - ABDOMINAL PAIN UPPER [None]
  - DISCOMFORT [None]
  - PHARMACEUTICAL PRODUCT COMPLAINT [None]
